FAERS Safety Report 4608976-4 (Version None)
Quarter: 2005Q1

REPORT INFORMATION
  Report Type: 
  Country: None (occurrence: None)
  Receive Date: 20050311
  Receipt Date: 20050301
  Transmission Date: 20050727
  Serious: Yes (Other)
  Sender: FDA-Public Use
  Company Number: 2005040366

PATIENT
  Sex: Female

DRUGS (4)
  1. CELEBRA (CELECOXIB) [Suspect]
     Indication: OSTEOARTHRITIS
     Dosage: 400 MG (200 MG, 2 IN 1 D), ORAL
     Route: 048
     Dates: start: 20010618, end: 20040101
  2. ROFECOXIB [Suspect]
     Indication: OSTEOARTHRITIS
     Dosage: 25 MG (25 MG, 1 IN 1 D), ORAL
     Route: 048
     Dates: start: 20000816, end: 20040101
  3. LEVOTHYROXINE SODIUM [Concomitant]
  4. WARFARIN SODIUM [Concomitant]

REACTIONS (1)
  - ATRIAL FIBRILLATION [None]
